FAERS Safety Report 7865157-9 (Version None)
Quarter: 2011Q4

REPORT INFORMATION
  Report Type: 
  Country: None (occurrence: None)
  Receive Date: 20111028
  Receipt Date: 20101022
  Transmission Date: 20120403
  Serious: No
  Sender: FDA-Public Use
  Company Number: US-GLAXOSMITHKLINE-A0888311A

PATIENT
  Age: 70 Year
  Sex: Female

DRUGS (7)
  1. PRILOSEC [Concomitant]
  2. SPIRIVA [Concomitant]
  3. ZOCOR [Concomitant]
     Dates: end: 20101001
  4. PROVENTIL [Concomitant]
  5. ADVAIR DISKUS 100/50 [Suspect]
     Indication: PRODUCT USED FOR UNKNOWN INDICATION
     Dosage: 1PUFF TWICE PER DAY
     Route: 055
     Dates: start: 20101008, end: 20101022
  6. DIOVAN [Concomitant]
  7. NORVASC [Concomitant]

REACTIONS (2)
  - MUSCLE SPASMS [None]
  - PAIN IN EXTREMITY [None]
